FAERS Safety Report 9747556 (Version 2)
Quarter: 2013Q4

REPORT INFORMATION
  Report Type: Report from Study
  Country: CH (occurrence: CH)
  Receive Date: 20131212
  Receipt Date: 20131226
  Transmission Date: 20140711
  Serious: Yes (Hospitalization)
  Sender: FDA-Public Use
  Company Number: CH-JNJFOC-20131205383

PATIENT
  Age: 36 Year
  Sex: Female

DRUGS (2)
  1. SIMPONI [Suspect]
     Indication: SPONDYLOARTHROPATHY
     Route: 058
     Dates: start: 20130414
  2. IRFEN [Concomitant]
     Indication: ANKYLOSING SPONDYLITIS
     Route: 065

REACTIONS (2)
  - Sepsis [Recovered/Resolved]
  - Bacterial pyelonephritis [Recovered/Resolved]
